FAERS Safety Report 19570981 (Version 1)
Quarter: 2021Q3

REPORT INFORMATION
  Report Type: Other
  Country: US (occurrence: US)
  Receive Date: 20210716
  Receipt Date: 20210716
  Transmission Date: 20211014
  Serious: No
  Sender: FDA-Public Use
  Company Number: US-UROVANT SCIENCES GMBH-202106-URV-000264

PATIENT
  Sex: Male

DRUGS (4)
  1. HYDROCHLOROTHIAZIDE. [Concomitant]
     Active Substance: HYDROCHLOROTHIAZIDE
     Indication: PRODUCT USED FOR UNKNOWN INDICATION
     Dosage: 12.5 MG, QD
     Route: 048
  2. ENALAPRIL [Concomitant]
     Active Substance: ENALAPRIL
     Indication: PRODUCT USED FOR UNKNOWN INDICATION
     Dosage: 20 MG, BID
     Route: 048
  3. AMPICILLIN [Concomitant]
     Active Substance: AMPICILLIN
     Indication: PYREXIA
     Dosage: UNK
     Route: 048
  4. GEMTESA [Suspect]
     Active Substance: VIBEGRON
     Indication: HYPERTONIC BLADDER
     Dosage: 75 MG, QD
     Route: 048
     Dates: start: 20210608, end: 20210617

REACTIONS (4)
  - Drug ineffective [Unknown]
  - Pyrexia [Unknown]
  - Oropharyngeal pain [Unknown]
  - Diarrhoea [Unknown]
